FAERS Safety Report 22621726 (Version 1)
Quarter: 2023Q2

REPORT INFORMATION
  Report Type: Spontaneous
  Country: US (occurrence: US)
  Receive Date: 20230620
  Receipt Date: 20230620
  Transmission Date: 20230722
  Serious: Yes (Other)
  Sender: FDA-Public Use
  Company Number: US-BAYER-2023A081676

PATIENT
  Age: 31 Year
  Sex: Male

DRUGS (4)
  1. ADEMPAS [Suspect]
     Active Substance: RIOCIGUAT
     Indication: Pulmonary arterial hypertension
     Dosage: UNK
  2. SOTATERCEPT [Concomitant]
     Active Substance: SOTATERCEPT
  3. EPOPROSTENOL [Concomitant]
     Active Substance: EPOPROSTENOL
  4. ERA [ERYTHROMYCIN STEARATE] [Concomitant]

REACTIONS (1)
  - Pulmonary arterial hypertension [None]
